FAERS Safety Report 5298087-X (Version None)
Quarter: 2007Q2

REPORT INFORMATION
  Report Type: 
  Country: None (occurrence: None)
  Receive Date: 20070416
  Receipt Date: 20070404
  Transmission Date: 20071010
  Serious: Yes (Disabling, Other)
  Sender: FDA-Public Use
  Company Number: PHBS2005CY07269

PATIENT
  Age: 69 Year
  Sex: Female

DRUGS (13)
  1. ZOMETA [Suspect]
     Indication: MULTIPLE MYELOMA
     Dosage: 4 MG, QMO
     Route: 042
     Dates: start: 20010731, end: 20031024
  2. ZOMETA [Suspect]
     Dosage: 4 MG, QMO
     Route: 042
     Dates: start: 20040512, end: 20041101
  3. ZOMETA [Suspect]
     Dosage: 3 MG, QMO
     Route: 042
     Dates: start: 20041220, end: 20050501
  4. AREDIA [Suspect]
     Indication: MULTIPLE MYELOMA
     Dosage: 90 MG, QMO
     Route: 065
     Dates: start: 20000822, end: 20010703
  5. FLUCONAZOLE [Concomitant]
     Dosage: 100 MG/D
  6. PENICILLIN [Concomitant]
     Dosage: 200 MG, BID
  7. SEPTRA [Concomitant]
     Dosage: 3 TIMES/WEEK
  8. ZOVIRAX [Concomitant]
     Dosage: 400 MG, BID
  9. THYROXIN [Concomitant]
     Dosage: 100 MG, QD
  10. EPOETIN NOS [Concomitant]
     Dosage: 4000 IU 3 TIMES A WEEK
  11. VINCRISTINE + ADRIAMYCIN + DEXAMETHASONE [Concomitant]
     Dates: end: 20020201
  12. THALIDOMIDE [Concomitant]
     Dosage: UNK, UNK
     Dates: start: 20020201, end: 20030401
  13. DEXAMETHASONE [Concomitant]
     Dates: start: 20030301

REACTIONS (5)
  - FISTULA [None]
  - HAEMORRHAGE [None]
  - OSTEOMYELITIS [None]
  - OSTEONECROSIS [None]
  - TOOTH EXTRACTION [None]
